FAERS Safety Report 12161691 (Version 1)
Quarter: 2016Q1

REPORT INFORMATION
  Report Type: Spontaneous
  Country: US (occurrence: US)
  Receive Date: 20160309
  Receipt Date: 20160309
  Transmission Date: 20160526
  Serious: Yes (Hospitalization)
  Sender: FDA-Public Use
  Company Number: US-BEH-2016059474

PATIENT
  Age: 45 Year
  Sex: Female
  Weight: 68 kg

DRUGS (13)
  1. HUMATE-P [Suspect]
     Active Substance: HUMAN COAGULATION FACTOR VIII/VON WILLEBRAND FACTOR COMPLEX
     Dosage: 3300 RCOF UNITS
     Route: 042
  2. NEOSPORIN [Concomitant]
     Active Substance: BACITRACIN ZINC\NEOMYCIN SULFATE\POLYMYXIN B SULFATE
  3. LIDOCAINE. [Concomitant]
     Active Substance: LIDOCAINE
  4. LYSTEDA [Concomitant]
     Active Substance: TRANEXAMIC ACID
  5. PREMARIN [Concomitant]
     Active Substance: ESTROGENS, CONJUGATED
  6. BENADRYL [Concomitant]
     Active Substance: DIPHENHYDRAMINE HYDROCHLORIDE
  7. HUMATE-P [Suspect]
     Active Substance: HUMAN COAGULATION FACTOR VIII/VON WILLEBRAND FACTOR COMPLEX
     Dosage: 3300 RCOF UNITS
     Route: 042
     Dates: start: 20030512
  8. PROTONIX [Concomitant]
     Active Substance: PANTOPRAZOLE SODIUM
  9. ZOFRAN [Concomitant]
     Active Substance: ONDANSETRON HYDROCHLORIDE
  10. NEURONTIN [Suspect]
     Active Substance: GABAPENTIN
  11. LAMICTAL [Suspect]
     Active Substance: LAMOTRIGINE
  12. HUMATE-P [Suspect]
     Active Substance: HUMAN COAGULATION FACTOR VIII/VON WILLEBRAND FACTOR COMPLEX
     Dosage: 3300 RCOF UNITS IV
     Route: 042
  13. HUMATE-P [Suspect]
     Active Substance: HUMAN COAGULATION FACTOR VIII/VON WILLEBRAND FACTOR COMPLEX
     Indication: VON WILLEBRAND^S DISEASE
     Dosage: 3300 RCOF UNITS
     Route: 042

REACTIONS (1)
  - Mental status changes [Unknown]

NARRATIVE: CASE EVENT DATE: 20160224
